FAERS Safety Report 9457172 (Version 1)
Quarter: 2013Q3

REPORT INFORMATION
  Report Type: Spontaneous
  Country: US (occurrence: US)
  Receive Date: 20130814
  Receipt Date: 20130814
  Transmission Date: 20140515
  Serious: No
  Sender: FDA-Public Use
  Company Number: US-BIOGENIDEC-2013BI075297

PATIENT
  Age: 54 Year
  Sex: Female

DRUGS (1)
  1. TYSABRI [Suspect]
     Indication: MULTIPLE SCLEROSIS
     Route: 042
     Dates: start: 20110921

REACTIONS (11)
  - Arthropathy [Recovered/Resolved]
  - Toothache [Recovered/Resolved]
  - Dysuria [Recovered/Resolved]
  - Memory impairment [Recovered/Resolved]
  - Speech disorder [Recovered/Resolved]
  - Feeling abnormal [Recovered/Resolved]
  - Fatigue [Recovered/Resolved]
  - Headache [Recovered/Resolved]
  - Urinary tract infection [Recovered/Resolved]
  - Dizziness [Recovered/Resolved]
  - Multiple sclerosis relapse [Recovered/Resolved]
